FAERS Safety Report 10078764 (Version 1)
Quarter: 2014Q2

REPORT INFORMATION
  Report Type: Spontaneous
  Country: US (occurrence: US)
  Receive Date: 20140415
  Receipt Date: 20140415
  Transmission Date: 20141212
  Serious: Yes (Other)
  Sender: FDA-Public Use
  Company Number: US-PFIZER INC-2014102143

PATIENT
  Age: 82 Year
  Sex: Male

DRUGS (1)
  1. SUTENT [Suspect]
     Indication: RENAL CANCER
     Dosage: 50 MG, CYCLIC (50 MG, 4 WKS ON, 2 WKS OFF)
     Route: 048
     Dates: start: 20140307

REACTIONS (3)
  - Vomiting [Unknown]
  - Abdominal pain upper [Unknown]
  - Dysphagia [Unknown]
